FAERS Safety Report 10244663 (Version 2)
Quarter: 2014Q3

REPORT INFORMATION
  Report Type: Spontaneous
  Country: GB (occurrence: GB)
  Receive Date: 20140618
  Receipt Date: 20140821
  Transmission Date: 20150326
  Serious: Yes (Other)
  Sender: FDA-Public Use
  Company Number: GB-GLAXOSMITHKLINE-B1003869A

PATIENT
  Age: 3 Decade
  Sex: Female

DRUGS (2)
  1. PAZOPANIB [Suspect]
     Active Substance: PAZOPANIB
     Indication: SARCOMA
     Dosage: 800MG PER DAY
     Route: 048
     Dates: start: 20140120
  2. ACAI BERRY [Concomitant]
     Indication: NUTRITIONAL SUPPLEMENTATION

REACTIONS (1)
  - Polycythaemia [Not Recovered/Not Resolved]

NARRATIVE: CASE EVENT DATE: 20140403
